FAERS Safety Report 16207386 (Version 1)
Quarter: 2019Q2

REPORT INFORMATION
  Report Type: Spontaneous
  Country: US (occurrence: US)
  Receive Date: 20190313
  Receipt Date: 20190313
  Transmission Date: 20190711
  Serious: No
  Sender: FDA-Public Use
  Company Number: None

PATIENT
  Sex: Female

DRUGS (1)
  1. GENOTROPIN [Suspect]
     Active Substance: SOMATROPIN
     Indication: HYPOPITUITARISM
     Dosage: ?          OTHER DOSE:0.4 MG;OTHER FREQUENCY:6 DAYS/WEEK AS DIR;?
     Route: 058
     Dates: start: 20161212

REACTIONS (2)
  - Feeling hot [None]
  - Hypertension [None]
